FAERS Safety Report 24423199 (Version 4)
Quarter: 2024Q4

REPORT INFORMATION
  Report Type: Spontaneous
  Country: JP (occurrence: JP)
  Receive Date: 20241010
  Receipt Date: 20241203
  Transmission Date: 20250114
  Serious: Yes (Hospitalization, Other)
  Sender: ELI LILLY AND COMPANY
  Company Number: JP-ELI_LILLY_AND_COMPANY-JP202410003735

PATIENT
  Age: 76 Year
  Sex: Female

DRUGS (1)
  1. RETEVMO [Suspect]
     Active Substance: SELPERCATINIB
     Indication: Non-small cell lung cancer
     Dosage: 320 MG, DAILY
     Route: 048
     Dates: start: 20240820, end: 20240924

REACTIONS (7)
  - Hepatitis fulminant [Recovered/Resolved]
  - Ischaemic hepatitis [Recovered/Resolved]
  - Hepatic function abnormal [Unknown]
  - Platelet count decreased [Unknown]
  - Infection [Unknown]
  - Hypertension [Unknown]
  - Pyrexia [Unknown]

NARRATIVE: CASE EVENT DATE: 20240917
